FAERS Safety Report 23566604 (Version 1)
Quarter: 2024Q1

REPORT INFORMATION
  Report Type: Spontaneous
  Country: US (occurrence: US)
  Receive Date: 20240226
  Receipt Date: 20240226
  Transmission Date: 20240410
  Serious: No
  Sender: FDA-Public Use
  Company Number: US-AMNEAL PHARMACEUTICALS-2023-AMRX-00786

PATIENT
  Age: 68 Year
  Sex: Male
  Weight: 56.689 kg

DRUGS (2)
  1. RYTARY [Suspect]
     Active Substance: CARBIDOPA\LEVODOPA
     Indication: Parkinson^s disease
     Dosage: 23.75 MG/95 MG, 02 CAPSULES 03 TIMES A DAY FOR FIRST 3 DAYS
     Route: 048
     Dates: start: 20230302
  2. RYTARY [Suspect]
     Active Substance: CARBIDOPA\LEVODOPA
     Dosage: 36.25/145 MG, 02 CAPSULES 03 TIMES A DAY
     Route: 048
     Dates: start: 20230302

REACTIONS (6)
  - Tremor [Unknown]
  - Blood pressure increased [Unknown]
  - Hypoglycaemia [Not Recovered/Not Resolved]
  - Decreased appetite [Not Recovered/Not Resolved]
  - Sleep disorder [Not Recovered/Not Resolved]
  - Abnormal dreams [Not Recovered/Not Resolved]

NARRATIVE: CASE EVENT DATE: 20230304
